FAERS Safety Report 9743227 (Version 1)
Quarter: 2013Q4

REPORT INFORMATION
  Report Type: Spontaneous
  Country: US (occurrence: US)
  Receive Date: 20131210
  Receipt Date: 20131210
  Transmission Date: 20140711
  Serious: No
  Sender: FDA-Public Use
  Company Number: US-GILEAD-2009-0025065

PATIENT
  Sex: Female
  Weight: 63.96 kg

DRUGS (14)
  1. LETAIRIS [Suspect]
     Indication: PULMONARY ARTERIAL HYPERTENSION
     Route: 048
  2. LETAIRIS [Suspect]
     Route: 048
     Dates: start: 20090822
  3. ALDACTONE [Concomitant]
  4. MIKRO-K [Concomitant]
  5. FUROSEMIDE [Concomitant]
  6. LEVOTHYROXINE [Concomitant]
  7. EXOXAC [Concomitant]
  8. PLO GEL [Concomitant]
  9. FOLIC ACID [Concomitant]
  10. VITAMIN D [Concomitant]
  11. REMODULIN [Concomitant]
  12. MULTIVITAMIN [Concomitant]
  13. IMODIUM A-D [Concomitant]
  14. IRON [Concomitant]

REACTIONS (1)
  - Anaemia [Unknown]
